FAERS Safety Report 6202494-8 (Version None)
Quarter: 2009Q2

REPORT INFORMATION
  Report Type: 
  Country: None (occurrence: None)
  Receive Date: 20090526
  Receipt Date: 20090518
  Transmission Date: 20091009
  Serious: Yes (Hospitalization)
  Sender: FDA-Public Use
  Company Number: US-SANOFI-SYNTHELABO-F01200900404

PATIENT
  Sex: Male

DRUGS (13)
  1. STOOL SOFTENER NOS [Concomitant]
     Dosage: UNK
  2. LINEZOLID [Concomitant]
     Dosage: UNK
     Route: 065
     Dates: start: 20090420, end: 20090425
  3. LOMOTIL [Concomitant]
     Dosage: UNK
     Route: 065
     Dates: start: 20090420
  4. TYLOX [Concomitant]
     Dosage: UNK
     Route: 065
     Dates: start: 20090406
  5. ATIVAN [Concomitant]
     Dosage: UNK
     Route: 065
     Dates: start: 20090406
  6. LEUKOVORIN [Suspect]
     Indication: RECTAL CANCER
     Route: 065
     Dates: start: 20090303, end: 20090303
  7. TYLENOL [Concomitant]
     Dosage: UNK
     Route: 065
     Dates: start: 20090406
  8. FLUOROURACIL [Suspect]
     Indication: RECTAL CANCER
     Route: 040
     Dates: start: 20090303, end: 20090303
  9. FLUOROURACIL [Suspect]
     Route: 041
     Dates: start: 20090303, end: 20090304
  10. BEVACIZUMAB [Suspect]
     Indication: RECTAL CANCER
     Dosage: UNK
     Route: 065
     Dates: start: 20090303, end: 20090303
  11. FLOMAX [Concomitant]
     Dosage: UNK
  12. OXALIPLATIN [Suspect]
     Indication: RECTAL CANCER
     Route: 041
     Dates: start: 20090303, end: 20090303
  13. OXYCONTIN [Concomitant]
     Dosage: UNK

REACTIONS (2)
  - ANORECTAL OPERATION [None]
  - SMALL INTESTINAL OBSTRUCTION [None]
